FAERS Safety Report 9051505 (Version 1)
Quarter: 2013Q1

REPORT INFORMATION
  Report Type: Spontaneous
  Country: US (occurrence: US)
  Receive Date: 20130206
  Receipt Date: 20130206
  Transmission Date: 20140127
  Serious: No
  Sender: FDA-Public Use
  Company Number: US-ALLERGAN-1218052US

PATIENT
  Sex: Female

DRUGS (9)
  1. RESTASIS [Suspect]
     Indication: PRODUCT USED FOR UNKNOWN INDICATION
     Dosage: 2 GTT, BID
     Route: 047
  2. SYSTANE [Concomitant]
     Indication: DRY EYE
     Route: 047
  3. BACLOFEN [Concomitant]
     Indication: MULTIPLE SCLEROSIS
     Dosage: 10 MG, UNK
     Route: 048
  4. CARBIDOPA/LEVODOPA [Concomitant]
     Indication: MULTIPLE SCLEROSIS
     Dosage: UNK
     Route: 048
  5. CLONAZEPAM [Concomitant]
     Indication: PRODUCT USED FOR UNKNOWN INDICATION
     Route: 048
  6. HORIZANT [Concomitant]
     Indication: RESTLESS LEGS SYNDROME
     Dosage: 600 MG, QHS
     Route: 048
  7. HORIZANT [Concomitant]
     Indication: MULTIPLE SCLEROSIS
  8. ATROVENT [Concomitant]
     Indication: PRODUCT USED FOR UNKNOWN INDICATION
     Dosage: UNK UNK, BID
     Route: 055
  9. PATANOL [Concomitant]
     Indication: HYPERSENSITIVITY
     Dosage: UNK UNK, PRN
     Route: 047

REACTIONS (5)
  - Blepharal pigmentation [Recovered/Resolved]
  - Scleral hyperaemia [Recovered/Resolved]
  - Eye irritation [Unknown]
  - Eye pain [Unknown]
  - Eye pruritus [Unknown]
